FAERS Safety Report 24384069 (Version 1)
Quarter: 2024Q4

REPORT INFORMATION
  Report Type: Spontaneous
  Country: US (occurrence: US)
  Receive Date: 20241001
  Receipt Date: 20241001
  Transmission Date: 20250115
  Serious: Yes (Other)
  Sender: AMGEN
  Company Number: US-AMGEN-USASP2024192925

PATIENT
  Age: 73 Year
  Sex: Male

DRUGS (4)
  1. RITUXIMAB [Suspect]
     Active Substance: RITUXIMAB
     Indication: Blood immunoglobulin M increased
     Dosage: UNK
     Route: 065
  2. IBRUTINIB [Concomitant]
     Active Substance: IBRUTINIB
     Indication: Blood immunoglobulin M increased
     Dosage: UNK
     Route: 065
  3. DEXAMETHASONE [Concomitant]
     Active Substance: DEXAMETHASONE
     Indication: Blood immunoglobulin M increased
     Dosage: 40 MILLIGRAM, QWK
     Route: 048
  4. BENDAMUSTINE [Concomitant]
     Active Substance: BENDAMUSTINE
     Indication: Blood immunoglobulin M increased
     Dosage: UNK
     Route: 065

REACTIONS (2)
  - Pneumocystis jirovecii pneumonia [Unknown]
  - Off label use [Unknown]
